FAERS Safety Report 20419620 (Version 2)
Quarter: 2022Q4

REPORT INFORMATION
  Report Type: Spontaneous
  Country: IT (occurrence: IT)
  Receive Date: 20220203
  Receipt Date: 20221117
  Transmission Date: 20230112
  Serious: Yes (Hospitalization, Other)
  Sender: FDA-Public Use
  Company Number: IT-BoehringerIngelheim-2021-BI-089341

PATIENT
  Age: 13 Year
  Sex: Female
  Weight: 48 kg

DRUGS (4)
  1. IBUPROFEN [Suspect]
     Active Substance: IBUPROFEN
     Indication: Drug abuse
     Dosage: UNK, ONCE A DAY (DOSE: 1 DF, TOTAL)
     Route: 048
     Dates: start: 20210131, end: 20210131
  2. BUTYLSCOPOLAMINE BROMIDE [Suspect]
     Active Substance: BUTYLSCOPOLAMINE BROMIDE
     Indication: Drug abuse
     Dosage: UNK, ONCE A DAY (DOSE: 3 DF)
     Route: 048
     Dates: start: 20210131, end: 20210131
  3. ACETAMINOPHEN [Suspect]
     Active Substance: ACETAMINOPHEN
     Indication: Drug abuse
     Dosage: 11 GRAM, ONCE A DAY
     Route: 048
     Dates: start: 20210131, end: 20210131
  4. DIHYDROCODEINE [Suspect]
     Active Substance: DIHYDROCODEINE
     Indication: Drug abuse
     Dosage: 20 GTT DROPS, ONCE A DAY (12.25, MG / ML ORAL DROPS, SOLUTION AT DOSE OF 20 GTT DROPS TOTAL VIA ORAL
     Route: 048
     Dates: start: 20210131, end: 20210131

REACTIONS (4)
  - Intentional self-injury [Recovered/Resolved]
  - Malaise [Recovered/Resolved]
  - Vomiting [Recovered/Resolved]
  - Drug abuse [Unknown]

NARRATIVE: CASE EVENT DATE: 20210131
